FAERS Safety Report 4492040-1 (Version None)
Quarter: 2004Q4

REPORT INFORMATION
  Report Type: 
  Country: None (occurrence: None)
  Receive Date: 20041101
  Receipt Date: 20041021
  Transmission Date: 20050328
  Serious: Yes (Life-Threatening)
  Sender: FDA-Public Use
  Company Number: F01200403269

PATIENT
  Age: 75 Year
  Sex: Male

DRUGS (5)
  1. (OXALIPLATIN) - SOLUTION - 230 MG [Suspect]
     Indication: COLORECTAL CANCER METASTATIC
     Dosage: 230 MG Q3W
     Route: 042
     Dates: start: 20040823, end: 20040823
  2. CAPECITABINE TABLET 1800MG [Suspect]
     Dosage: 1800 MG TWICE DAILY PER ORAL FROM D1 TO D14, Q3W
     Route: 048
     Dates: start: 20040823
  3. BEVACIZUMAB OR PLACEBO SOLUTION 520 MG [Suspect]
     Dosage: 520 MG Q3W
     Route: 042
     Dates: start: 20040823, end: 20040823
  4. DIGOXIN [Concomitant]
  5. VENTOLIN [Concomitant]

REACTIONS (1)
  - LEFT VENTRICULAR FAILURE [None]
